FAERS Safety Report 6451578-8 (Version None)
Quarter: 2009Q4

REPORT INFORMATION
  Report Type: 
  Country: None (occurrence: None)
  Receive Date: 20091123
  Receipt Date: 20091116
  Transmission Date: 20100525
  Serious: Yes (Other)
  Sender: FDA-Public Use
  Company Number: GB-PFIZER INC-2009247765

PATIENT
  Age: 72 Year
  Sex: Male

DRUGS (3)
  1. CHAMPIX [Suspect]
     Dosage: 0.5 MG, 2X/DAY
  2. SIMVASTATIN [Concomitant]
     Dosage: UNK
  3. ENALAPRIL [Concomitant]
     Dosage: UNK

REACTIONS (5)
  - ABDOMINAL PAIN UPPER [None]
  - HEART RATE IRREGULAR [None]
  - MALAISE [None]
  - NAUSEA [None]
  - SYNCOPE [None]
